FAERS Safety Report 4839562-9 (Version None)
Quarter: 2005Q4

REPORT INFORMATION
  Report Type: 
  Country: None (occurrence: None)
  Receive Date: 20051128
  Receipt Date: 20051128
  Transmission Date: 20060501
  Serious: Yes (Hospitalization)
  Sender: FDA-Public Use
  Company Number: None

PATIENT
  Age: 56 Year
  Sex: Male
  Weight: 63.95 kg

DRUGS (1)
  1. LISINOPRIL [Suspect]
     Indication: BLOOD PRESSURE
     Dosage: 1/2 TABLET   DAILY   PO
     Route: 048
     Dates: start: 20050801, end: 20050820

REACTIONS (2)
  - BLOOD PRESSURE SYSTOLIC INCREASED [None]
  - SWELLING FACE [None]
